FAERS Safety Report 4323236-7 (Version None)
Quarter: 2004Q1

REPORT INFORMATION
  Report Type: 
  Country: None (occurrence: None)
  Receive Date: 20040322
  Receipt Date: 20040308
  Transmission Date: 20041129
  Serious: Yes (Hospitalization)
  Sender: FDA-Public Use
  Company Number: ENZ-ABE-155

PATIENT
  Age: 42 Year
  Sex: Female
  Weight: 104 kg

DRUGS (24)
  1. ABELCET [Suspect]
     Indication: ANTIFUNGAL PROPHYLAXIS
     Dosage: 1 MG/KG DAILY IV
     Route: 042
     Dates: start: 20031107, end: 20031107
  2. ABELCET [Suspect]
     Indication: ANTIFUNGAL PROPHYLAXIS
     Dosage: 2.5 MG DAILY IV
     Route: 042
     Dates: start: 20031108, end: 20031109
  3. PROVERA [Concomitant]
  4. PROTONIX [Concomitant]
  5. VALTREX [Concomitant]
  6. VORICONAZOLE [Concomitant]
  7. CIPROFLOXACIN [Concomitant]
  8. LINEZOLID [Concomitant]
  9. BACTRIM [Concomitant]
  10. ALLOPURINOL [Concomitant]
  11. AMBIEN [Concomitant]
  12. ZOFRAN [Concomitant]
  13. ATIVAN [Concomitant]
  14. ACETAMINOPHEN [Concomitant]
  15. CYCLOPHOSPHAMIDE [Concomitant]
  16. CYCLOSPORINE [Concomitant]
  17. DIPHENHYDRAMINE HCL [Concomitant]
  18. HYDROMORPHONE [Concomitant]
  19. LORAZEPAM [Concomitant]
  20. MEDROXYPROGESTRONE ACETATE [Concomitant]
  21. MESNA [Concomitant]
  22. FUROSEMIDE [Concomitant]
  23. DOCUSATE SODIUM [Concomitant]
  24. CYCLOSPORINE [Concomitant]

REACTIONS (12)
  - BLOOD CREATININE INCREASED [None]
  - CARDIAC TAMPONADE [None]
  - CHEST PAIN [None]
  - DIARRHOEA [None]
  - FEBRILE NEUTROPENIA [None]
  - HERPES VIRUS INFECTION [None]
  - MARKEDLY REDUCED DIETARY INTAKE [None]
  - METRORRHAGIA [None]
  - MUCOSAL INFLAMMATION [None]
  - NAUSEA [None]
  - PERICARDIAL EFFUSION [None]
  - URINARY TRACT INFECTION ENTEROCOCCAL [None]
